FAERS Safety Report 5701296-6 (Version None)
Quarter: 2008Q2

REPORT INFORMATION
  Report Type: 
  Country: None (occurrence: None)
  Receive Date: 20080410
  Receipt Date: 20080329
  Transmission Date: 20081010
  Serious: Yes (Other)
  Sender: FDA-Public Use
  Company Number: US-PFIZER INC-2008028319

PATIENT
  Sex: Female
  Weight: 82.1 kg

DRUGS (13)
  1. CHANTIX [Suspect]
     Indication: SMOKING CESSATION THERAPY
     Dates: start: 20080301, end: 20080301
  2. AZATHIOPRINE [Concomitant]
  3. GLIMEPIRIDE [Concomitant]
  4. METFORMIN HCL [Concomitant]
  5. AVALIDE [Concomitant]
     Dosage: TEXT:150/12.5 MG
  6. ACETYLSALICYLIC ACID SRT [Concomitant]
  7. ACTOS [Concomitant]
  8. DILTIAZEM HYDROCHLORIDE [Concomitant]
  9. FOSAMAX [Concomitant]
  10. CRANBERRY [Concomitant]
  11. CITALOPRAM HYDROBROMIDE [Concomitant]
  12. PLAVIX [Concomitant]
  13. VYTORIN [Concomitant]
     Dosage: TEXT:10/40 MG

REACTIONS (5)
  - ANGIOPLASTY [None]
  - BLOOD GLUCOSE INCREASED [None]
  - MALAISE [None]
  - NAUSEA [None]
  - VIRAL UPPER RESPIRATORY TRACT INFECTION [None]
